FAERS Safety Report 5589813-0 (Version None)
Quarter: 2008Q1

REPORT INFORMATION
  Report Type: 
  Country: None (occurrence: None)
  Receive Date: 20080110
  Receipt Date: 20080110
  Transmission Date: 20080703
  Serious: Yes (Death)
  Sender: FDA-Public Use
  Company Number: None

PATIENT
  Age: 16 Year
  Sex: Male
  Weight: 57.3 kg

DRUGS (1)
  1. CELEXA [Suspect]
     Indication: MAJOR DEPRESSION
     Dosage: 40 MG DAILY PO
     Route: 048
     Dates: start: 20071110, end: 20071211

REACTIONS (15)
  - APNOEA [None]
  - CARDIAC ARREST [None]
  - COMPLETED SUICIDE [None]
  - DISTURBANCE IN ATTENTION [None]
  - DRUG ABUSE [None]
  - FATIGUE [None]
  - FEELING ABNORMAL [None]
  - FEELING OF DESPAIR [None]
  - IMMOBILE [None]
  - MULTIPLE DRUG OVERDOSE [None]
  - NEGATIVE THOUGHTS [None]
  - PULSE ABSENT [None]
  - SELF INJURIOUS BEHAVIOUR [None]
  - SPINAL DISORDER [None]
  - SUICIDAL IDEATION [None]
